FAERS Safety Report 17363194 (Version 1)
Quarter: 2020Q1

REPORT INFORMATION
  Report Type: Spontaneous
  Country: US (occurrence: US)
  Receive Date: 20200203
  Receipt Date: 20200203
  Transmission Date: 20200409
  Serious: No
  Sender: FDA-Public Use
  Company Number: US-PFIZER INC-2020042223

PATIENT
  Age: 31 Year
  Sex: Female

DRUGS (1)
  1. ZOLOFT [Suspect]
     Active Substance: SERTRALINE HYDROCHLORIDE
     Indication: PERINATAL DEPRESSION
     Dosage: UNK
     Route: 048
     Dates: start: 2016, end: 2016

REACTIONS (5)
  - Dizziness [Unknown]
  - Heart rate increased [Unknown]
  - Nausea [Unknown]
  - Presyncope [Unknown]
  - Visual impairment [Unknown]

NARRATIVE: CASE EVENT DATE: 2016
